FAERS Safety Report 25871192 (Version 1)
Quarter: 2025Q4

REPORT INFORMATION
  Report Type: Spontaneous
  Country: US (occurrence: US)
  Receive Date: 20251001
  Receipt Date: 20251001
  Transmission Date: 20260118
  Serious: No
  Sender: NOVARTIS
  Company Number: US-002147023-NVSC2025US148318

PATIENT
  Sex: Male

DRUGS (1)
  1. EVEROLIMUS [Suspect]
     Active Substance: EVEROLIMUS
     Indication: Product used for unknown indication
     Dosage: 5 MG (FOR A MONTH)
     Route: 065

REACTIONS (1)
  - Diarrhoea [Unknown]
